FAERS Safety Report 25541834 (Version 1)
Quarter: 2025Q3

REPORT INFORMATION
  Report Type: Spontaneous
  Country: US (occurrence: US)
  Receive Date: 20250711
  Receipt Date: 20250711
  Transmission Date: 20251021
  Serious: No
  Sender: Haleon PLC
  Company Number: US-HALEON-2251581

PATIENT

DRUGS (2)
  1. ADVIL [Suspect]
     Active Substance: IBUPROFEN
     Indication: Pain
  2. ADVIL [Suspect]
     Active Substance: IBUPROFEN

REACTIONS (2)
  - Drug effect less than expected [Unknown]
  - Off label use [Unknown]
